FAERS Safety Report 7991763-7 (Version None)
Quarter: 2011Q4

REPORT INFORMATION
  Report Type: 
  Country: None (occurrence: None)
  Receive Date: 20111219
  Receipt Date: 20111214
  Transmission Date: 20120403
  Serious: Yes (Death, Hospitalization)
  Sender: FDA-Public Use
  Company Number: PHHY2011CH109140

PATIENT
  Age: 78 Year
  Sex: Female

DRUGS (1)
  1. VOLTAREN [Suspect]
     Indication: NECK PAIN
     Dosage: UNK
     Route: 048
     Dates: start: 20111001

REACTIONS (21)
  - LOSS OF CONSCIOUSNESS [None]
  - HAEMATEMESIS [None]
  - GASTRIC HAEMORRHAGE [None]
  - DUODENAL ULCER [None]
  - GASTRIC ULCER [None]
  - SHOCK HAEMORRHAGIC [None]
  - LACTIC ACIDOSIS [None]
  - HYPOVOLAEMIC SHOCK [None]
  - ANAEMIA MACROCYTIC [None]
  - HEAD INJURY [None]
  - PYREXIA [None]
  - MELAENA [None]
  - HYPOTENSION [None]
  - METABOLIC ACIDOSIS [None]
  - HAEMODYNAMIC INSTABILITY [None]
  - HAEMORRHAGIC ANAEMIA [None]
  - THROMBOSIS [None]
  - CARDIAC ARREST [None]
  - RECTAL HAEMORRHAGE [None]
  - GENERAL PHYSICAL HEALTH DETERIORATION [None]
  - RENAL FAILURE [None]
